FAERS Safety Report 7113937-X (Version None)
Quarter: 2010Q4

REPORT INFORMATION
  Report Type: 
  Country: None (occurrence: None)
  Receive Date: 20101119
  Receipt Date: 20101112
  Transmission Date: 20110411
  Serious: Yes (Death, Hospitalization)
  Sender: FDA-Public Use
  Company Number: A0798302A

PATIENT
  Age: 42 Year
  Sex: Male
  Weight: 153.6 kg

DRUGS (17)
  1. AVANDIA [Suspect]
     Indication: TYPE 2 DIABETES MELLITUS
     Dosage: 4MG PER DAY
     Route: 048
     Dates: start: 19991117, end: 20070503
  2. ADVAIR DISKUS 100/50 [Concomitant]
  3. ALBUTEROL [Concomitant]
  4. ASPIRIN [Concomitant]
  5. COREG [Concomitant]
  6. FLOMAX [Concomitant]
  7. FUROSEMIDE [Concomitant]
  8. GLYBURIDE [Concomitant]
  9. HUMULIN R [Concomitant]
  10. LANOXIN [Concomitant]
  11. LISINOPRIL [Concomitant]
  12. MAGNESIUM [Concomitant]
  13. POTASSIUM CHLORIDE [Concomitant]
  14. PRAVACHOL [Concomitant]
  15. PREVACID [Concomitant]
  16. TRICOR [Concomitant]
  17. JANUVIA [Concomitant]

REACTIONS (7)
  - CARDIAC FAILURE CONGESTIVE [None]
  - CARDIO-RESPIRATORY ARREST [None]
  - CARDIOMYOPATHY [None]
  - CORONARY ARTERY DISEASE [None]
  - HYPERLIPIDAEMIA [None]
  - MYOCARDIAL INFARCTION [None]
  - SLEEP APNOEA SYNDROME [None]
